FAERS Safety Report 10036509 (Version 2)
Quarter: 2014Q1

REPORT INFORMATION
  Report Type: Spontaneous
  Country: US (occurrence: US)
  Receive Date: 20140326
  Receipt Date: 20140326
  Transmission Date: 20141002
  Serious: Yes (Hospitalization)
  Sender: FDA-Public Use
  Company Number: PHHY2013US001525

PATIENT
  Age: 19 Year
  Sex: Male

DRUGS (9)
  1. CICLOSPORIN [Suspect]
     Indication: IMMUNOSUPPRESSION
     Dosage: 1 MG/KG
     Route: 042
  2. CICLOSPORIN [Suspect]
     Dosage: 200 MG, BID
  3. PREDNISONE [Suspect]
     Indication: IMMUNOSUPPRESSION
     Dosage: 25 MG, BID
  4. PREDNISONE [Suspect]
     Dosage: 5 MG, BID
  5. TACROLIMUS [Suspect]
     Dosage: 2 MG, BID
  6. TACROLIMUS [Suspect]
     Dosage: 0.5 MG, BID
  7. MYCOPHENOLATE MOFETIL [Suspect]
     Indication: IMMUNOSUPPRESSION
     Dosage: 1000 MG, BID
  8. DACLIZUMAB [Suspect]
     Indication: IMMUNOSUPPRESSION
     Dosage: 1 MG/KG, INDUCTION DOSE
  9. SILDENAFIL [Concomitant]
     Indication: PULMONARY VASCULAR DISORDER

REACTIONS (4)
  - Renal impairment [Unknown]
  - Myopathy [Recovered/Resolved]
  - Muscular weakness [Recovered/Resolved]
  - Grand mal convulsion [Recovered/Resolved]
